FAERS Safety Report 4326784-9 (Version None)
Quarter: 2004Q1

REPORT INFORMATION
  Report Type: 
  Country: None (occurrence: None)
  Receive Date: 20040330
  Receipt Date: 20040330
  Transmission Date: 20041129
  Serious: Yes (Death)
  Sender: FDA-Public Use
  Company Number: None

PATIENT
  Sex: Female
  Weight: 90.7 kg

DRUGS (8)
  1. XIGRIS [Suspect]
     Indication: SEPSIS
     Dosage: 24 MCG/KG/HR IV
     Route: 042
     Dates: start: 20040318, end: 20040321
  2. LEVAFLEXACIN [Concomitant]
  3. AZTREOPAM [Concomitant]
  4. PROPOFOL [Concomitant]
  5. SODIUM BICARBONATE [Concomitant]
  6. NOREPINEPHRINE [Concomitant]
  7. PHENYLEPHRINE [Concomitant]
  8. INSULIN SLIDING SCALE [Concomitant]

REACTIONS (2)
  - CEREBRAL HAEMORRHAGE [None]
  - PLATELET COUNT DECREASED [None]
